FAERS Safety Report 7061393-2 (Version None)
Quarter: 2010Q4

REPORT INFORMATION
  Report Type: 
  Country: None (occurrence: None)
  Receive Date: 20101026
  Receipt Date: 20101020
  Transmission Date: 20110411
  Serious: Yes (Death)
  Sender: FDA-Public Use
  Company Number: PHHY2010JP67366

PATIENT
  Age: 13 Year
  Sex: Male

DRUGS (3)
  1. LOPRESSOR [Suspect]
     Route: 048
  2. MEXILETINE [Suspect]
  3. SELOKEN [Suspect]
     Dosage: UNK
     Dates: start: 20000101

REACTIONS (1)
  - SUDDEN DEATH [None]
